FAERS Safety Report 10468039 (Version 1)
Quarter: 2014Q3

REPORT INFORMATION
  Report Type: Spontaneous
  Country: US (occurrence: US)
  Receive Date: 20140922
  Receipt Date: 20140922
  Transmission Date: 20150326
  Serious: Yes (Other)
  Sender: FDA-Public Use
  Company Number: PHHY2014US121990

PATIENT
  Age: 60 Year
  Sex: Female

DRUGS (6)
  1. ACETYLSALICYLIC ACID [Suspect]
     Active Substance: ASPIRIN
     Dosage: 325 MG, BID
  2. BUDESONIDE W/FORMOTEROL [Concomitant]
  3. ACETYLSALICYLIC ACID [Suspect]
     Active Substance: ASPIRIN
     Dosage: 650 MG, UNK
  4. NAPROXEN. [Suspect]
     Active Substance: NAPROXEN
     Dosage: 440 MG, UNK
  5. ZILEUTON [Concomitant]
     Active Substance: ZILEUTON
     Dosage: 1200 MG, UNK
  6. MOMETASONE [Concomitant]
     Active Substance: MOMETASONE
     Route: 045

REACTIONS (4)
  - Asthma [Unknown]
  - Nasal congestion [Unknown]
  - Aspirin-exacerbated respiratory disease [Unknown]
  - Anosmia [Unknown]
